FAERS Safety Report 4739188-1 (Version None)
Quarter: 2005Q3

REPORT INFORMATION
  Report Type: 
  Country: None (occurrence: None)
  Receive Date: 20050810
  Receipt Date: 20050513
  Transmission Date: 20060218
  Serious: No
  Sender: FDA-Public Use
  Company Number: US-GLAXOSMITHKLINE-A0558532A

PATIENT
  Sex: Male

DRUGS (3)
  1. PAXIL [Suspect]
     Route: 048
  2. TRAZODONE [Concomitant]
  3. PAXIL [Concomitant]
     Dates: start: 20000101

REACTIONS (1)
  - GINGIVAL SWELLING [None]
